FAERS Safety Report 8201870-1 (Version None)
Quarter: 2012Q1

REPORT INFORMATION
  Report Type: 
  Country: None (occurrence: None)
  Receive Date: 20120312
  Receipt Date: 20120305
  Transmission Date: 20120608
  Serious: Yes (Hospitalization, Other)
  Sender: FDA-Public Use
  Company Number: US-TEVA-326410USA

PATIENT
  Age: 58 Year
  Sex: Male

DRUGS (3)
  1. RISPERIDONE [Suspect]
     Indication: SCHIZOPHRENIA
     Dosage: 5 MG/DAY
     Route: 065
  2. METHADON HCL TAB [Concomitant]
     Indication: SCHIZOPHRENIA
     Route: 065
  3. CLONAZEPAM [Concomitant]
     Indication: SCHIZOPHRENIA
     Dosage: 4MG IN THE EVENING
     Route: 065

REACTIONS (11)
  - DIPLEGIA [None]
  - AREFLEXIA [None]
  - ASPIRATION [None]
  - GYNAECOMASTIA [None]
  - DYSPHONIA [None]
  - BULBAR PALSY [None]
  - WEIGHT DECREASED [None]
  - EXTRAOCULAR MUSCLE PARESIS [None]
  - OESOPHAGEAL ACHALASIA [None]
  - DYSPHAGIA [None]
  - HYPERPROLACTINAEMIA [None]
